FAERS Safety Report 9432493 (Version 1)
Quarter: 2013Q3

REPORT INFORMATION
  Report Type: Spontaneous
  Country: GB (occurrence: GB)
  Receive Date: 20130731
  Receipt Date: 20130731
  Transmission Date: 20140515
  Serious: Yes (Disabling)
  Sender: FDA-Public Use
  Company Number: GB-NOVOPROD-383839

PATIENT
  Age: 60 Year
  Sex: Male
  Weight: 102 kg

DRUGS (6)
  1. VICTOZA [Suspect]
     Indication: PRODUCT USED FOR UNKNOWN INDICATION
     Dosage: UNK
     Route: 065
     Dates: start: 20130318, end: 20130504
  2. ASPIRIN [Concomitant]
     Dosage: UNK
     Dates: start: 20130320
  3. GLIMEPIRIDE [Concomitant]
     Dosage: UNK
     Dates: start: 20130307
  4. LANTUS [Concomitant]
     Dosage: UNK
     Dates: start: 20130318
  5. METFORMIN [Concomitant]
     Dosage: UNK
     Dates: start: 20130320
  6. SIMVASTATIN [Concomitant]
     Dosage: UNK
     Dates: start: 20130321

REACTIONS (3)
  - Pancreatitis [Not Recovered/Not Resolved]
  - Amylase increased [Unknown]
  - Abdominal pain upper [Unknown]
